FAERS Safety Report 5410080-2 (Version None)
Quarter: 2007Q3

REPORT INFORMATION
  Report Type: 
  Country: None (occurrence: None)
  Receive Date: 20070809
  Receipt Date: 20070730
  Transmission Date: 20080115
  Serious: Yes (Hospitalization)
  Sender: FDA-Public Use
  Company Number: GB-BAUSCH-2007BL002657

PATIENT
  Age: 29 Year
  Sex: Female

DRUGS (4)
  1. CIPROFLOXACIN HYDROCHLORIDE [Suspect]
     Indication: ANTI-INFECTIVE THERAPY
     Route: 042
  2. ENOXAPARIN SODIUM [Concomitant]
     Indication: COAGULOPATHY
     Route: 058
  3. WARFARIN SODIUM [Concomitant]
     Indication: COAGULOPATHY
  4. TOBRAMYCIN [Concomitant]
     Route: 049

REACTIONS (1)
  - COAGULOPATHY [None]
